FAERS Safety Report 5160050-7 (Version None)
Quarter: 2006Q4

REPORT INFORMATION
  Report Type: 
  Country: None (occurrence: None)
  Receive Date: 20061129
  Receipt Date: 20060810
  Transmission Date: 20070319
  Serious: No
  Sender: FDA-Public Use
  Company Number: US-GLAXOSMITHKLINE-A0616107A

PATIENT
  Age: 66 Year
  Sex: Female

DRUGS (2)
  1. WELLBUTRIN SR [Suspect]
     Indication: DEPRESSION
     Dosage: 150MG TWICE PER DAY
     Route: 048
  2. VITAMINS [Concomitant]

REACTIONS (7)
  - BALANCE DISORDER [None]
  - BRUXISM [None]
  - CHEST DISCOMFORT [None]
  - DIZZINESS [None]
  - DYSGEUSIA [None]
  - EMOTIONAL DISORDER [None]
  - OCULAR DISCOMFORT [None]
